FAERS Safety Report 8052336-3 (Version None)
Quarter: 2012Q1

REPORT INFORMATION
  Report Type: 
  Country: None (occurrence: None)
  Receive Date: 20120118
  Receipt Date: 20120111
  Transmission Date: 20120608
  Serious: No
  Sender: FDA-Public Use
  Company Number: US-B.I. PHARMACEUTICALS,INC./RIDGEFIELD-2012-BP-00646BP

PATIENT
  Age: 84 Year
  Sex: Female

DRUGS (14)
  1. PANTOPRAZOLE [Concomitant]
     Indication: GASTROOESOPHAGEAL REFLUX DISEASE
  2. LISINOPRIL [Concomitant]
     Indication: HYPERTENSION
  3. ISOSORBIDE DINITRATE [Concomitant]
     Indication: HYPERTENSION
  4. SYMBICORT [Concomitant]
     Indication: ASTHMA
  5. PREDNISONE TAB [Concomitant]
     Indication: ASTHMA
  6. ASPIRIN [Concomitant]
     Dosage: 81 MG
     Route: 048
  7. LOVASTATIN [Concomitant]
     Indication: BLOOD CHOLESTEROL INCREASED
  8. ACETAMINOPHEN [Concomitant]
  9. AMLODIPINE [Concomitant]
     Indication: HYPERTENSION
  10. GLYBURIDE [Concomitant]
     Indication: DIABETES MELLITUS
  11. FUROSEMIDE [Concomitant]
  12. SYMBICORT [Concomitant]
     Indication: CHRONIC OBSTRUCTIVE PULMONARY DISEASE
  13. SPIRIVA [Suspect]
     Indication: CHRONIC OBSTRUCTIVE PULMONARY DISEASE
     Dosage: 18 MCG
     Route: 055
     Dates: start: 20111201
  14. SPIRIVA [Suspect]
     Route: 048
     Dates: start: 20120111, end: 20120111

REACTIONS (1)
  - ACCIDENTAL EXPOSURE [None]
